FAERS Safety Report 10621467 (Version 1)
Quarter: 2014Q4

REPORT INFORMATION
  Report Type: Spontaneous
  Country: US (occurrence: None)
  Receive Date: 20141126
  Receipt Date: 20141126
  Transmission Date: 20150529
  Serious: Yes (Hospitalization)
  Sender: FDA-Public Use
  Company Number: None

PATIENT
  Age: 11 Year
  Sex: Male
  Weight: 30 kg

DRUGS (4)
  1. MERCAPTOPURINE. [Suspect]
     Active Substance: MERCAPTOPURINE
  2. METHOTREXATE [Suspect]
     Active Substance: METHOTREXATE
  3. PREDNISONE. [Suspect]
     Active Substance: PREDNISONE
  4. VINCRISTINE SULFATE. [Suspect]
     Active Substance: VINCRISTINE SULFATE
     Dates: end: 20141113

REACTIONS (11)
  - Nausea [None]
  - Sepsis [None]
  - Klebsiella test positive [None]
  - Staphylococcus test positive [None]
  - Haemoglobin decreased [None]
  - Therapeutic response decreased [None]
  - Respiratory disorder [None]
  - Neutrophil count decreased [None]
  - White blood cell count decreased [None]
  - Pyrexia [None]
  - Vomiting [None]

NARRATIVE: CASE EVENT DATE: 20141123
